FAERS Safety Report 7581852-3 (Version None)
Quarter: 2011Q2

REPORT INFORMATION
  Report Type: 
  Country: None (occurrence: None)
  Receive Date: 20110629
  Receipt Date: 20110602
  Transmission Date: 20111010
  Serious: No
  Sender: FDA-Public Use
  Company Number: US-BAYER-2011-047625

PATIENT
  Age: 57 Year
  Sex: Male
  Weight: 85 kg

DRUGS (5)
  1. NAPHCON [BENZALKONIUM CHLORIDE,NAPHAZOLINE HYDROCHLORIDE] [Concomitant]
  2. VASOTEC [Concomitant]
  3. LIPITOR [Concomitant]
  4. RID 1-2-3 SYSTEM [Suspect]
     Dosage: UNK
     Route: 061
     Dates: start: 20110401
  5. COUMADIN [Concomitant]

REACTIONS (2)
  - EYE PRURITUS [None]
  - EYE SWELLING [None]
